FAERS Safety Report 15767903 (Version 1)
Quarter: 2018Q4

REPORT INFORMATION
  Report Type: Spontaneous
  Country: PT (occurrence: PT)
  Receive Date: 20181227
  Receipt Date: 20181227
  Transmission Date: 20190205
  Serious: Yes (Hospitalization)
  Sender: FDA-Public Use
  Company Number: PT-MYLANLABS-2018M1094817

PATIENT
  Age: 51 Year
  Sex: Female

DRUGS (2)
  1. DISULFIRAM. [Suspect]
     Active Substance: DISULFIRAM
     Dosage: OVERDOSE AMOUNT
     Route: 065
  2. DISULFIRAM. [Suspect]
     Active Substance: DISULFIRAM
     Indication: ALCOHOL ABUSE
     Dosage: CHRONIC ALCOHOL ABUSE TREATMENT AT UNKNOWN DOSE
     Route: 065

REACTIONS (11)
  - Suicide attempt [Unknown]
  - Nystagmus [Unknown]
  - Somnolence [Not Recovered/Not Resolved]
  - Mental status changes [Unknown]
  - Toxicity to various agents [Unknown]
  - Strabismus [Unknown]
  - Dysarthria [Unknown]
  - Paraparesis [Not Recovered/Not Resolved]
  - Intentional overdose [Unknown]
  - Hemiparesis [Unknown]
  - Dysphonia [Not Recovered/Not Resolved]
